FAERS Safety Report 16129925 (Version 2)
Quarter: 2019Q2

REPORT INFORMATION
  Report Type: Spontaneous
  Country: US (occurrence: US)
  Receive Date: 20190328
  Receipt Date: 20190412
  Transmission Date: 20190711
  Serious: Yes (Death, Other)
  Sender: FDA-Public Use
  Company Number: US-PURDUE-GBR-2019-0065344

PATIENT
  Weight: 3.5 kg

DRUGS (2)
  1. MORPHINE SULFATE. [Suspect]
     Active Substance: MORPHINE SULFATE
     Indication: PAIN MANAGEMENT
     Dosage: UNK UNK, DAILY
     Route: 065
  2. MORPHINE SULFATE. [Suspect]
     Active Substance: MORPHINE SULFATE
     Indication: SEDATION

REACTIONS (5)
  - Hypotension [Fatal]
  - Condition aggravated [Fatal]
  - Pulmonary hypertension [Fatal]
  - Respiratory distress [Fatal]
  - Coagulopathy [Fatal]
